FAERS Safety Report 18453207 (Version 3)
Quarter: 2020Q4

REPORT INFORMATION
  Report Type: Report from Study
  Country: CA (occurrence: CA)
  Receive Date: 20201102
  Receipt Date: 20201113
  Transmission Date: 20210114
  Serious: Yes (Hospitalization)
  Sender: FDA-Public Use
  Company Number: CA-PFIZER INC-2020421462

PATIENT
  Age: 54 Year
  Sex: Female
  Weight: 63.7 kg

DRUGS (38)
  1. BINIMETINIB [Suspect]
     Active Substance: BINIMETINIB
     Dosage: 45 MG, 2X/DAY (CYCLE 4)
     Route: 048
     Dates: start: 20200811, end: 20200830
  2. DOXYCYCLINE. [Concomitant]
     Active Substance: DOXYCYCLINE
     Dosage: 100 MG
     Dates: start: 20200622
  3. HYDROCORTISONE ACETATE. [Concomitant]
     Active Substance: HYDROCORTISONE ACETATE
     Dosage: 1 %
     Dates: start: 20200831
  4. LEUCOVORIN. [Suspect]
     Active Substance: LEUCOVORIN
     Indication: COLORECTAL CANCER METASTATIC
     Dosage: 400 MG/M2, CYCLIC (400 MILLIGRAM/SQ. METER, Q2W) (VOLUME OF INFUSION: 340 ML)
     Route: 042
     Dates: start: 20200610, end: 20200901
  5. VALTREX [Concomitant]
     Active Substance: VALACYCLOVIR HYDROCHLORIDE
     Dosage: 1 G
     Dates: start: 201001
  6. LIDOCAINE. [Concomitant]
     Active Substance: LIDOCAINE
     Dosage: 1 DF
     Dates: start: 20200801
  7. CALMOSEPTINE [MENTHOL;ZINC OXIDE] [Concomitant]
     Dosage: 1 DF
     Dates: start: 20200912
  8. PROCHLORAZINE [Concomitant]
     Dosage: 10 MG
     Dates: start: 20200506
  9. FLUOROURACIL. [Suspect]
     Active Substance: FLUOROURACIL
     Indication: COLORECTAL CANCER METASTATIC
     Dosage: 2400 MG/M2, CYCLIC (2400 MG/M2 OVER 46-48 HRS, EVERY 2 WEEKS (Q2W)) (VOLUME OF INFUSION: 230 ML)
     Route: 042
     Dates: start: 20200610, end: 20200903
  10. FLUOROURACIL. [Suspect]
     Active Substance: FLUOROURACIL
     Dosage: 2400 MG/M2, CYCLIC (2400 MG/M2 OVER 46-48 HRS, EVERY 2 WEEKS (Q2W)) (CYCLE 5)
     Route: 042
     Dates: start: 20200915, end: 20200917
  11. PEMBROLIZUMAB. [Suspect]
     Active Substance: PEMBROLIZUMAB
     Indication: COLORECTAL CANCER METASTATIC
     Dosage: 200 MG, CYCLIC Q3W (VOLUME OF INFUSION: 100 ML)
     Route: 042
     Dates: start: 20200610, end: 20200901
  12. DECADRON [Concomitant]
     Active Substance: DEXAMETHASONE
     Dosage: 4 MG
     Dates: start: 20200614
  13. HYDROCORTISONE/NYSTATIN [Concomitant]
     Dosage: 15 ML
     Dates: start: 20200714
  14. NIFEDIPINE. [Concomitant]
     Active Substance: NIFEDIPINE
     Dosage: 1 DF
     Dates: start: 20200804
  15. IRINOTECAN HCL [Suspect]
     Active Substance: IRINOTECAN HYDROCHLORIDE
     Indication: COLORECTAL CANCER METASTATIC
     Dosage: 180 MG/M2, CYCLIC (180 MILLIGRAM/SQ. METER, EVERY 2 WEEKS (Q2W)) (VOLUME OF INFUSION: 294.7 ML)
     Route: 042
     Dates: start: 20200610, end: 20200901
  16. IRINOTECAN HCL [Suspect]
     Active Substance: IRINOTECAN HYDROCHLORIDE
     Dosage: 180 MG/M2, CYCLIC (180 MILLIGRAM/SQ. METER, EVERY 2 WEEKS (Q2W)) (CYCLE 5)
     Route: 042
     Dates: start: 20200915, end: 20200915
  17. ELOCOM [Concomitant]
     Active Substance: MOMETASONE FUROATE
     Dosage: 1 DF
     Dates: start: 20200622
  18. GRASTOFIL [Concomitant]
     Active Substance: FILGRASTIM
     Dosage: 300 UG
     Dates: start: 20200615
  19. LASIX [Concomitant]
     Active Substance: FUROSEMIDE
     Dosage: 20 MG
     Dates: start: 20200817
  20. LOPROX [Concomitant]
     Active Substance: CICLOPIROX\CICLOPIROX OLAMINE
     Dosage: 1 DF
     Dates: start: 20200904
  21. NAPROXEN. [Concomitant]
     Active Substance: NAPROXEN
     Dosage: 500 MG
     Dates: start: 20200316
  22. LEUCOVORIN. [Suspect]
     Active Substance: LEUCOVORIN
     Dosage: 400 MG/M2, CYCLIC (400 MILLIGRAM/SQ. METER, Q2W) (CYCLE 5)
     Route: 042
     Dates: start: 20200915, end: 20200915
  23. CALCIUM [Concomitant]
     Active Substance: CALCIUM
     Dosage: 500 MG
     Dates: start: 201701
  24. LAX A DAY PHARMA [Concomitant]
     Dosage: 1 G
     Dates: start: 20200510
  25. PROCTOSEDYL [AMYLOCAINE HYDROCHLORIDE;BENZALKONIUM CHLORIDE;BENZOCAINE [Concomitant]
     Dosage: 1 DF
     Dates: start: 20200510
  26. ONDANSETRON [Concomitant]
     Active Substance: ONDANSETRON
     Dosage: 8 MG
     Dates: start: 20200615
  27. K-DUR [Concomitant]
     Active Substance: POTASSIUM CHLORIDE
     Dosage: 20 MEQ
     Dates: start: 20200817
  28. CLINDAMYCIN PHOSPHATE. [Concomitant]
     Active Substance: CLINDAMYCIN PHOSPHATE
     Dosage: 30 G
     Dates: start: 20200831
  29. MUPIROCIN. [Concomitant]
     Active Substance: MUPIROCIN
     Dosage: 1 DF
     Dates: start: 20200916
  30. CYCLOBENZAPRINE. [Concomitant]
     Active Substance: CYCLOBENZAPRINE
     Dosage: 10 MG
     Dates: start: 20200924
  31. BINIMETINIB [Suspect]
     Active Substance: BINIMETINIB
     Indication: COLORECTAL CANCER METASTATIC
     Dosage: 45 MG, 2X/DAY
     Route: 048
     Dates: start: 20200610, end: 20200810
  32. PEMBROLIZUMAB. [Suspect]
     Active Substance: PEMBROLIZUMAB
     Dosage: 200 MG, CYCLIC Q3W (CYCLE 6)
     Route: 042
     Dates: start: 20200924, end: 20200924
  33. D TABS [Concomitant]
     Active Substance: CHOLECALCIFEROL
     Dosage: 10000 IU
     Dates: start: 201701
  34. LYRICA [Concomitant]
     Active Substance: PREGABALIN
     Dosage: 25 MG
     Dates: start: 20200510
  35. GRASTOFIL [Concomitant]
     Active Substance: FILGRASTIM
     Dosage: 300 MICROL
     Dates: start: 20200930
  36. CETIRIZINE HYDROCHLORIDE. [Concomitant]
     Active Substance: CETIRIZINE HYDROCHLORIDE
     Dosage: 20 MG
     Dates: start: 20200910
  37. ARISTOCORT [TRIAMCINOLONE ACETONIDE] [Concomitant]
     Active Substance: TRIAMCINOLONE ACETONIDE
     Dosage: 1 DF
     Dates: start: 20200910
  38. LOPERAMIDE [Concomitant]
     Active Substance: LOPERAMIDE
     Dosage: 2 MG
     Dates: start: 20200819

REACTIONS (1)
  - Anal abscess [Recovered/Resolved]

NARRATIVE: CASE EVENT DATE: 20201020
